FAERS Safety Report 10232593 (Version 1)
Quarter: 2014Q2

REPORT INFORMATION
  Report Type: Spontaneous
  Country: US (occurrence: US)
  Receive Date: 20140612
  Receipt Date: 20140612
  Transmission Date: 20141212
  Serious: Yes (Other)
  Sender: FDA-Public Use
  Company Number: US-ASTRAZENECA-2014SE39182

PATIENT
  Age: 20 Year
  Sex: Male
  Weight: 47.6 kg

DRUGS (11)
  1. NEXIUM [Suspect]
     Indication: GASTROOESOPHAGEAL REFLUX DISEASE
     Route: 048
     Dates: start: 20140530
  2. NEXIUM [Suspect]
     Indication: EROSIVE OESOPHAGITIS
     Route: 048
     Dates: start: 20140530
  3. PRILOSEC UNSPECIFIED [Suspect]
     Indication: GASTROOESOPHAGEAL REFLUX DISEASE
     Route: 050
     Dates: start: 1996
  4. PRILOSEC UNSPECIFIED [Suspect]
     Indication: EROSIVE OESOPHAGITIS
     Route: 050
     Dates: start: 1996
  5. FERINSOL [Concomitant]
     Indication: HAEMORRHAGE
     Dosage: UNK QD
     Route: 050
  6. TRAZINE [Concomitant]
     Indication: CONVULSION
     Dosage: 3.75 MG, 4 TIMES PER DAY AND UP TO 4 TIMES AS REQUIRED.
     Route: 050
     Dates: start: 1995
  7. PHENERGEN [Concomitant]
     Indication: ANTIALLERGIC THERAPY
     Dosage: 25 MG, 4 TIMES A DAY AND UP TO 2 TIMES AS REQUIRED
     Route: 050
  8. PHENERGEN [Concomitant]
     Indication: NAUSEA
     Dosage: 25 MG, 4 TIMES A DAY AND UP TO 2 TIMES AS REQUIRED
     Route: 050
  9. PHENERGEN [Concomitant]
     Indication: SEDATIVE THERAPY
     Dosage: 25 MG, 4 TIMES A DAY AND UP TO 2 TIMES AS REQUIRED
     Route: 050
  10. PHENERGEN [Concomitant]
     Indication: CONVULSION
     Dosage: 25 MG, 4 TIMES A DAY AND UP TO 2 TIMES AS REQUIRED
     Route: 050
  11. UNKNOWN [Concomitant]
     Indication: DYSPNOEA
     Dosage: UNK UNK
     Route: 045

REACTIONS (6)
  - Haematemesis [Unknown]
  - Oesophageal irritation [Unknown]
  - Convulsion [Unknown]
  - Muscle contracture [Unknown]
  - Off label use [Unknown]
  - Drug dose omission [Unknown]
